FAERS Safety Report 18062331 (Version 1)
Quarter: 2020Q3

REPORT INFORMATION
  Report Type: Spontaneous
  Country: FR (occurrence: FR)
  Receive Date: 20200724
  Receipt Date: 20200724
  Transmission Date: 20201103
  Serious: Yes (Other)
  Sender: FDA-Public Use
  Company Number: FR-AUROBINDO-AUR-APL-2020-036065

PATIENT
  Age: 38 Year
  Sex: Female
  Weight: 39 kg

DRUGS (4)
  1. FLUCONAZOLE KABI [Suspect]
     Active Substance: FLUCONAZOLE
     Indication: CANDIDA INFECTION
     Dosage: 1200 MILLIGRAM, ONCE A DAY
     Route: 041
     Dates: start: 20200529, end: 20200609
  2. MEROPENEM ARROW [Suspect]
     Active Substance: MEROPENEM
     Indication: PERITONITIS
     Dosage: 2 GRAM, ONCE A DAY
     Route: 041
     Dates: start: 20200529, end: 20200612
  3. ATARAX [Suspect]
     Active Substance: HYDROXYZINE HYDROCHLORIDE
     Indication: INSOMNIA
     Dosage: CF COMMENTAIRES
     Route: 048
     Dates: start: 20200605
  4. PANTOPRAZOL ARROW 40 MG  POWDER FOR SOLUTION FOR INJECTION [Suspect]
     Active Substance: PANTOPRAZOLE SODIUM
     Indication: GASTROINTESTINAL DISORDER PROPHYLAXIS
     Dosage: 40 MILLIGRAM, ONCE A DAY
     Route: 041
     Dates: start: 20200517, end: 20200619

REACTIONS (3)
  - Eosinophilia [Recovering/Resolving]
  - Hepatocellular injury [Recovering/Resolving]
  - Rash maculo-papular [Recovered/Resolved]

NARRATIVE: CASE EVENT DATE: 20200607
